FAERS Safety Report 16810996 (Version 3)
Quarter: 2019Q4

REPORT INFORMATION
  Report Type: Spontaneous
  Country: DE (occurrence: DE)
  Receive Date: 20190916
  Receipt Date: 20191210
  Transmission Date: 20200122
  Serious: Yes (Other)
  Sender: FDA-Public Use
  Company Number: DE-MYLANLABS-2019M1086146

PATIENT
  Age: 79 Year
  Sex: Male

DRUGS (11)
  1. TAMSULOSIN [Suspect]
     Active Substance: TAMSULOSIN
     Indication: BENIGN PROSTATIC HYPERPLASIA
     Dosage: UNK
     Route: 048
  2. ASPIRIN. [Concomitant]
     Active Substance: ASPIRIN
     Indication: PRODUCT USED FOR UNKNOWN INDICATION
     Dosage: UNK
  3. OMEPRAZOLE. [Concomitant]
     Active Substance: OMEPRAZOLE
     Indication: PRODUCT USED FOR UNKNOWN INDICATION
     Dosage: UNK
  4. FENTANYL. [Suspect]
     Active Substance: FENTANYL
     Indication: KNEE OPERATION
     Dosage: 100 UG
     Route: 062
     Dates: start: 2009
  5. RAMIPRIL. [Suspect]
     Active Substance: RAMIPRIL
     Indication: HYPERTENSION
     Dosage: UNK
     Route: 048
  6. MAGNESIUM [Concomitant]
     Active Substance: MAGNESIUM
     Indication: PRODUCT USED FOR UNKNOWN INDICATION
     Dosage: UNK
  7. NITRAZEPAM [Suspect]
     Active Substance: NITRAZEPAM
     Dosage: 5 DOSAGE FORM
     Route: 048
  8. NITRAZEPAM [Suspect]
     Active Substance: NITRAZEPAM
     Indication: INSOMNIA
     Dosage: 0.5 DF, UNK
     Route: 048
  9. NITRAZEPAM [Suspect]
     Active Substance: NITRAZEPAM
     Dosage: 0.5 DF, UNK
     Route: 048
  10. NOVAMINSULFON [Concomitant]
     Active Substance: METAMIZOLE
     Indication: PRODUCT USED FOR UNKNOWN INDICATION
     Dosage: UNK
     Route: 048
  11. SEEBRI [Concomitant]
     Active Substance: GLYCOPYRROLATE
     Indication: PRODUCT USED FOR UNKNOWN INDICATION
     Dosage: UNK

REACTIONS (6)
  - Drug abuse [Unknown]
  - Drug dependence [Unknown]
  - Fatigue [Unknown]
  - Memory impairment [Unknown]
  - Feeling cold [Unknown]
  - Dyspnoea [Unknown]
